FAERS Safety Report 21034395 (Version 1)
Quarter: 2022Q3

REPORT INFORMATION
  Report Type: Spontaneous
  Country: RO (occurrence: RO)
  Receive Date: 20220701
  Receipt Date: 20220701
  Transmission Date: 20221027
  Serious: Yes (Hospitalization)
  Sender: FDA-Public Use
  Company Number: None

PATIENT
  Age: 70 Year
  Sex: Male

DRUGS (5)
  1. CISPLATIN [Suspect]
     Active Substance: CISPLATIN
     Indication: Non-Hodgkin^s lymphoma stage IV
     Dosage: 250 MG, DURATION : 24 HOURS
     Route: 041
     Dates: start: 20220510, end: 20220511
  2. ONDANSETRON HYDROCHLORIDE [Concomitant]
     Active Substance: ONDANSETRON HYDROCHLORIDE
     Indication: Product used for unknown indication
     Dosage: 24 MILLIGRAM DAILY; 24 MG (3 X 8)/DAY, DURATION : 4 DAYS
     Route: 042
     Dates: start: 20220510, end: 20220514
  3. DEXAMETHASONE [Concomitant]
     Active Substance: DEXAMETHASONE
     Indication: Product used for unknown indication
     Dosage: 40 MILLIGRAM DAILY; 40 MG/DAY, DURATION : 3 DAYS
     Route: 042
     Dates: start: 20220510, end: 20220513
  4. CYTARABINE [Concomitant]
     Active Substance: CYTARABINE
     Indication: Product used for unknown indication
     Dosage: 10 GRAM DAILY; 10 G (2 X 5 G) /DAY (TWO INFUSIONS AT 12 HOURS INTERVAL BETWEEN THEM),DURATION : 1 DA
     Route: 041
     Dates: start: 20220511, end: 20220512
  5. MABTHERA [Concomitant]
     Active Substance: RITUXIMAB
     Indication: Product used for unknown indication
     Dosage: 1400 MG
     Route: 058
     Dates: start: 20220510, end: 20220510

REACTIONS (1)
  - Acute kidney injury [Recovering/Resolving]

NARRATIVE: CASE EVENT DATE: 20220512
